FAERS Safety Report 16406968 (Version 2)
Quarter: 2019Q3

REPORT INFORMATION
  Report Type: Spontaneous
  Country: US (occurrence: US)
  Receive Date: 20190608
  Receipt Date: 20190803
  Transmission Date: 20191004
  Serious: No
  Sender: FDA-Public Use
  Company Number: US-CELGENEUS-USA-20190511592

PATIENT
  Sex: Male

DRUGS (1)
  1. POMALYST [Suspect]
     Active Substance: POMALIDOMIDE
     Indication: PLASMA CELL MYELOMA
     Dosage: 4 MILLIGRAM
     Route: 048
     Dates: start: 20181113

REACTIONS (5)
  - Blood urea increased [Unknown]
  - Drug intolerance [Not Recovered/Not Resolved]
  - Plasma cell myeloma [Unknown]
  - Blood immunoglobulin G increased [Unknown]
  - Blood creatinine increased [Unknown]
